APPROVED DRUG PRODUCT: OMEPRAZOLE
Active Ingredient: OMEPRAZOLE
Strength: 20MG
Dosage Form/Route: TABLET, DELAYED RELEASE;ORAL
Application: A207740 | Product #001
Applicant: DR REDDYS LABORATORIES LTD
Approved: Nov 5, 2018 | RLD: No | RS: No | Type: OTC